FAERS Safety Report 15491663 (Version 1)
Quarter: 2018Q4

REPORT INFORMATION
  Report Type: Spontaneous
  Country: NL (occurrence: NL)
  Receive Date: 20181012
  Receipt Date: 20181012
  Transmission Date: 20190205
  Serious: Yes (Hospitalization)
  Sender: FDA-Public Use
  Company Number: NL-TEVA-2018-NL-963587

PATIENT
  Age: 87 Year
  Sex: Male

DRUGS (1)
  1. LEVODOPA/CARBIDOPA TEVA [Suspect]
     Active Substance: CARBIDOPA\LEVODOPA
     Indication: PARKINSON^S DISEASE
     Route: 065

REACTIONS (4)
  - Therapy non-responder [Recovering/Resolving]
  - Depressed mood [Recovering/Resolving]
  - Dysstasia [Recovering/Resolving]
  - Product substitution issue [Unknown]
